FAERS Safety Report 5691816-2 (Version None)
Quarter: 2008Q2

REPORT INFORMATION
  Report Type: 
  Country: None (occurrence: None)
  Receive Date: 20080401
  Receipt Date: 20080401
  Transmission Date: 20081010
  Serious: Yes (Other)
  Sender: FDA-Public Use
  Company Number: None

PATIENT
  Age: 10 Year
  Sex: Male
  Weight: 29.9374 kg

DRUGS (6)
  1. SINGULAIR [Suspect]
     Indication: ASTHMA
     Dosage: 5 MG ONCE DAILY AT NIGH PO
     Route: 048
     Dates: start: 20050401, end: 20080329
  2. SINGULAIR [Suspect]
     Indication: HYPERSENSITIVITY
     Dosage: 5 MG ONCE DAILY AT NIGH PO
     Route: 048
     Dates: start: 20050401, end: 20080329
  3. ADVAIR HFA [Concomitant]
  4. ZYRTEC [Concomitant]
  5. NASONEX [Concomitant]
  6. ADDERALL 30 [Concomitant]

REACTIONS (24)
  - ABDOMINAL PAIN UPPER [None]
  - ABNORMAL BEHAVIOUR [None]
  - AGGRESSION [None]
  - ANGER [None]
  - ATTENTION DEFICIT/HYPERACTIVITY DISORDER [None]
  - BITE [None]
  - BREATH ODOUR [None]
  - DEHYDRATION [None]
  - DISSOCIATION [None]
  - DISTURBANCE IN ATTENTION [None]
  - DIZZINESS [None]
  - EMOTIONAL DISORDER [None]
  - FRUSTRATION [None]
  - HAEMORRHAGE [None]
  - HEADACHE [None]
  - INTENTIONAL SELF-INJURY [None]
  - IRRITABILITY [None]
  - LOSS OF CONSCIOUSNESS [None]
  - MALAISE [None]
  - MOOD ALTERED [None]
  - NAUSEA [None]
  - OPPOSITIONAL DEFIANT DISORDER [None]
  - RESTLESSNESS [None]
  - SOCIAL AVOIDANT BEHAVIOUR [None]
